FAERS Safety Report 13670609 (Version 1)
Quarter: 2017Q2

REPORT INFORMATION
  Report Type: Spontaneous
  Country: US (occurrence: US)
  Receive Date: 20170620
  Receipt Date: 20170620
  Transmission Date: 20170830
  Serious: Yes (Other)
  Sender: FDA-Public Use
  Company Number: US-TEVA-779167USA

PATIENT
  Age: 85 Year
  Sex: Female

DRUGS (5)
  1. LIPITOR [Suspect]
     Active Substance: ATORVASTATIN CALCIUM
     Route: 065
  2. METOPROLOL. [Suspect]
     Active Substance: METOPROLOL
     Route: 065
  3. ASA [Suspect]
     Active Substance: ASPIRIN
     Route: 065
  4. WARFARIN [Suspect]
     Active Substance: WARFARIN
     Route: 065
  5. LASIX [Suspect]
     Active Substance: FUROSEMIDE
     Route: 065

REACTIONS (7)
  - Blood pressure increased [Unknown]
  - Pulmonary oedema [Unknown]
  - Haematochezia [Unknown]
  - Ventricular tachycardia [Unknown]
  - Heart rate increased [Unknown]
  - Dyspnoea [Unknown]
  - International normalised ratio increased [Unknown]
